FAERS Safety Report 9546821 (Version 1)
Quarter: 2013Q3

REPORT INFORMATION
  Report Type: Spontaneous
  Country: FR (occurrence: FR)
  Receive Date: 20130924
  Receipt Date: 20130924
  Transmission Date: 20140515
  Serious: Yes (Hospitalization, Other)
  Sender: FDA-Public Use
  Company Number: FR-009507513-1309FRA007151

PATIENT
  Age: 73 Year
  Sex: Male
  Weight: 85 kg

DRUGS (15)
  1. VICTRELIS [Suspect]
     Indication: HEPATITIS C
     Dosage: 4 DF, TID
     Route: 048
     Dates: start: 20130211
  2. VIRAFERONPEG [Suspect]
     Indication: HEPATITIS C
     Dosage: 150 MICROGRAM, QW
     Route: 058
     Dates: start: 20130114, end: 20130228
  3. VIRAFERONPEG [Suspect]
     Dosage: 120 MICROGRAM, QW
     Route: 058
     Dates: start: 20130301
  4. RIBAVIRIN [Suspect]
     Indication: HEPATITIS C
     Dosage: 1000 MG, QD
     Route: 048
     Dates: start: 20130114, end: 20130221
  5. RIBAVIRIN [Suspect]
     Dosage: 800 MG, QD
     Route: 048
     Dates: start: 20130222, end: 20130228
  6. RIBAVIRIN [Suspect]
     Dosage: 600 MG, QD
     Route: 048
     Dates: start: 20130301, end: 201303
  7. RIBAVIRIN [Suspect]
     Dosage: 400 MG, QD
     Route: 048
     Dates: start: 201303
  8. NEORECORMON [Concomitant]
     Indication: ANAEMIA
     Dosage: 30000 IU, QW
     Route: 058
     Dates: start: 20130228
  9. INEXIUM [Concomitant]
     Dosage: 40 MG, QPM
  10. UROREC [Concomitant]
     Indication: PROSTATIC DISORDER
     Dosage: 4 MG, QD
  11. LIPANTHYL [Concomitant]
     Indication: HYPERLIPIDAEMIA
     Dosage: 145 MG, QPM
  12. PROPRANOLOL LP [Concomitant]
     Indication: HYPERTENSION
     Dosage: 160 MG, QAM
  13. SEROPRAM [Concomitant]
     Indication: ANXIETY
     Dosage: 10 MG, QAM
  14. NORDAZ [Concomitant]
     Indication: ANXIETY
     Dosage: 0.25 DF, QPM
  15. ROWASA [Concomitant]
     Indication: GASTROENTERITIS RADIATION
     Dosage: 1 DF, QD
     Dates: start: 20130315

REACTIONS (2)
  - Pancytopenia [Recovered/Resolved]
  - Anaemia [Recovered/Resolved]
